FAERS Safety Report 10514347 (Version 1)
Quarter: 2014Q4

REPORT INFORMATION
  Report Type: Spontaneous
  Country: US (occurrence: US)
  Receive Date: 20141013
  Receipt Date: 20141013
  Transmission Date: 20150528
  Serious: No
  Sender: FDA-Public Use
  Company Number: US-009507513-1410USA004759

PATIENT
  Sex: Female

DRUGS (1)
  1. CLARITIN-D 24 HOUR [Suspect]
     Active Substance: LORATADINE\PSEUDOEPHEDRINE SULFATE
     Indication: PRODUCT USED FOR UNKNOWN INDICATION
     Dosage: UNK, UNKNOWN
     Route: 048
     Dates: start: 20141006

REACTIONS (7)
  - Disorientation [Unknown]
  - Palpitations [Unknown]
  - Chest discomfort [Unknown]
  - Hypoaesthesia [Unknown]
  - Hallucination [Unknown]
  - Decreased appetite [Unknown]
  - Euphoric mood [Unknown]

NARRATIVE: CASE EVENT DATE: 201410
